FAERS Safety Report 7105817-0 (Version None)
Quarter: 2010Q4

REPORT INFORMATION
  Report Type: 
  Country: None (occurrence: None)
  Receive Date: 20101110
  Receipt Date: 20101027
  Transmission Date: 20110411
  Serious: Yes (Hospitalization)
  Sender: FDA-Public Use
  Company Number: UTC-001584

PATIENT
  Age: 26 Year
  Sex: Female
  Weight: 36.36 kg

DRUGS (2)
  1. TYVASO [Suspect]
     Indication: PULMONARY ARTERIAL HYPERTENSION
     Dosage: 72 MCG 918 MCG, 4 IN 1 D), INGHALATION
     Route: 055
     Dates: start: 20100927, end: 20101008
  2. REVATIO [Concomitant]

REACTIONS (8)
  - CAESAREAN SECTION [None]
  - CONDITION AGGRAVATED [None]
  - MITRAL VALVE INCOMPETENCE [None]
  - POST PROCEDURAL COMPLICATION [None]
  - PREMATURE LABOUR [None]
  - PULMONARY VALVE INCOMPETENCE [None]
  - RESPIRATORY DISTRESS [None]
  - TRICUSPID VALVE INCOMPETENCE [None]
